FAERS Safety Report 9385927 (Version 2)
Quarter: 2013Q3

REPORT INFORMATION
  Report Type: Spontaneous
  Country: US (occurrence: US)
  Receive Date: 20130705
  Receipt Date: 20130731
  Transmission Date: 20140515
  Serious: Yes (Hospitalization, Other)
  Sender: FDA-Public Use
  Company Number: US-009507513-1307USA002329

PATIENT
  Age: 32 Year
  Sex: Female
  Weight: 78.91 kg

DRUGS (2)
  1. NEXPLANON [Suspect]
     Indication: CONTRACEPTION
     Dosage: 1 ROD
     Route: 059
     Dates: start: 20130514, end: 20130620
  2. NEXPLANON [Suspect]
     Dosage: 1 ROD
     Route: 059
     Dates: start: 20130708

REACTIONS (5)
  - Implant site cellulitis [Recovered/Resolved]
  - Implant site bruising [Recovered/Resolved]
  - Weight increased [Unknown]
  - Device expulsion [Recovered/Resolved with Sequelae]
  - Implant site scar [Unknown]
